FAERS Safety Report 8402982-X (Version None)
Quarter: 2012Q2

REPORT INFORMATION
  Report Type: 
  Country: None (occurrence: None)
  Receive Date: 20120601
  Receipt Date: 20120524
  Transmission Date: 20120825
  Serious: Yes (Other)
  Sender: FDA-Public Use
  Company Number: DE-B.I. PHARMACEUTICALS,INC./RIDGEFIELD-2012-DE-01374DE

PATIENT
  Sex: Female

DRUGS (7)
  1. PANTOPRAZOLE [Concomitant]
     Dosage: 20 MG
  2. DOMINAL FORTE [Concomitant]
     Dosage: 40 MG
  3. METOPROLOL TARTRATE [Concomitant]
     Dosage: 47.5 MG
  4. PRADAXA [Suspect]
     Indication: ATRIAL FIBRILLATION
     Dosage: 220 MG
     Dates: start: 20120516
  5. BISOPROLOL FUMARATE [Concomitant]
     Dosage: 5 MG
  6. MOVIPREP [Concomitant]
     Dosage: FORMULATION: BAG
  7. DIPYRONE TAB [Concomitant]
     Dosage: 2000 MG

REACTIONS (4)
  - RENAL IMPAIRMENT [None]
  - DEPRESSED LEVEL OF CONSCIOUSNESS [None]
  - SOMNOLENCE [None]
  - URINARY RETENTION [None]
